FAERS Safety Report 7085339-6 (Version None)
Quarter: 2010Q4

REPORT INFORMATION
  Report Type: 
  Country: None (occurrence: None)
  Receive Date: 20101105
  Receipt Date: 20101027
  Transmission Date: 20110411
  Serious: No
  Sender: FDA-Public Use
  Company Number: JP-PFIZER INC-2010131357

PATIENT
  Age: 79 Year
  Sex: Male

DRUGS (6)
  1. CHAMPIX [Suspect]
     Dosage: 2 MG, 1X/DAY
     Route: 048
     Dates: start: 20100929
  2. LENDORMIN [Concomitant]
     Dosage: 0.25 MG/DAY
     Route: 048
  3. OLMETEC [Concomitant]
     Dosage: 5 MG/DAY
     Route: 048
  4. CARNACULIN [Concomitant]
     Dosage: 25 MG/DAY
  5. PURSENNID [Concomitant]
     Dosage: 12 MG/DAY
  6. KETOPROFEN [Concomitant]
     Dosage: 40 MG/DAY

REACTIONS (3)
  - MICTURITION FREQUENCY DECREASED [None]
  - NOCTURIA [None]
  - URINE OUTPUT DECREASED [None]
